FAERS Safety Report 13624930 (Version 1)
Quarter: 2017Q2

REPORT INFORMATION
  Report Type: Spontaneous
  Country: US (occurrence: US)
  Receive Date: 20170607
  Receipt Date: 20170607
  Transmission Date: 20170830
  Serious: No
  Sender: FDA-Public Use
  Company Number: US-JNJFOC-20170508771

PATIENT
  Sex: Male

DRUGS (1)
  1. RISPERDAL [Suspect]
     Active Substance: RISPERIDONE
     Indication: SCHIZOPHRENIA
     Route: 065

REACTIONS (6)
  - Impaired work ability [Unknown]
  - Delusion [Unknown]
  - Depression [Unknown]
  - Disturbance in attention [Unknown]
  - Anxiety [Unknown]
  - Hallucination, auditory [Unknown]
